FAERS Safety Report 21598347 (Version 3)
Quarter: 2023Q1

REPORT INFORMATION
  Report Type: Report from Study
  Country: US (occurrence: US)
  Receive Date: 20221115
  Receipt Date: 20230207
  Transmission Date: 20230417
  Serious: Yes (Hospitalization, Other)
  Sender: FDA-Public Use
  Company Number: US-ABBVIE-4200172

PATIENT
  Age: 58 Year
  Sex: Female

DRUGS (1)
  1. VENCLEXTA [Suspect]
     Active Substance: VENETOCLAX
     Indication: Myelodysplastic syndrome
     Dosage: FORM STRENGTH- 100MG
     Route: 048

REACTIONS (4)
  - Hospitalisation [Unknown]
  - Gait disturbance [Unknown]
  - Off label use [Unknown]
  - Hip fracture [Unknown]

NARRATIVE: CASE EVENT DATE: 20221101
